FAERS Safety Report 4471061-9 (Version None)
Quarter: 2004Q4

REPORT INFORMATION
  Report Type: 
  Country: None (occurrence: None)
  Receive Date: 20041011
  Receipt Date: 20040930
  Transmission Date: 20050328
  Serious: Yes (Death)
  Sender: FDA-Public Use
  Company Number: DE-JNJFOC-20041000769

PATIENT
  Sex: Male

DRUGS (3)
  1. REOPRO [Suspect]
     Dosage: 4 ML IN 50 ML NACL-SOLUTION BY 4 ML PER HOUR
     Route: 042
  2. REOPRO [Suspect]
     Route: 042
  3. ACTIVASE [Suspect]
     Route: 013

REACTIONS (1)
  - CEREBRAL HAEMATOMA [None]
